FAERS Safety Report 7137141-4 (Version None)
Quarter: 2010Q4

REPORT INFORMATION
  Report Type: 
  Country: None (occurrence: None)
  Receive Date: 20101206
  Receipt Date: 20080624
  Transmission Date: 20110411
  Serious: Yes (Death, Hospitalization)
  Sender: FDA-Public Use
  Company Number: US-ACTELION-A-US2007-16234

PATIENT

DRUGS (3)
  1. TRACLEER [Suspect]
     Indication: PULMONARY ARTERIAL HYPERTENSION
     Route: 048
     Dates: start: 20070514
  2. REVATIO [Concomitant]
  3. OXYGEN [Concomitant]

REACTIONS (10)
  - AMNESIA [None]
  - ANKLE FRACTURE [None]
  - DEATH [None]
  - DEPRESSION [None]
  - DYSPNOEA [None]
  - FALL [None]
  - INSOMNIA [None]
  - LOSS OF CONSCIOUSNESS [None]
  - SYNCOPE [None]
  - VISUAL IMPAIRMENT [None]
